FAERS Safety Report 6817674-8 (Version None)
Quarter: 2010Q3

REPORT INFORMATION
  Report Type: 
  Country: None (occurrence: None)
  Receive Date: 20100706
  Receipt Date: 20100624
  Transmission Date: 20110219
  Serious: Yes (Life-Threatening, Hospitalization)
  Sender: FDA-Public Use
  Company Number: JP-PFIZER INC-2010076148

PATIENT
  Age: 16 Year
  Sex: Female

DRUGS (3)
  1. CLOTIAZEPAM [Suspect]
     Indication: INTENTIONAL SELF-INJURY
     Dosage: 100 MG, SINGLE
     Route: 048
     Dates: start: 20100611, end: 20100611
  2. SOLANAX [Suspect]
     Indication: DEPRESSION
     Dosage: UNK
     Route: 048
     Dates: start: 20100611, end: 20100611
  3. DIPHENHYDRAMINE HYDROCHLORIDE [Suspect]
     Indication: INTENTIONAL SELF-INJURY
     Dosage: 120 DF, SINGLE
     Route: 048

REACTIONS (4)
  - ALTERED STATE OF CONSCIOUSNESS [None]
  - CONVULSION [None]
  - OVERDOSE [None]
  - VOCAL CORD PARALYSIS [None]
